FAERS Safety Report 12082803 (Version 1)
Quarter: 2016Q1

REPORT INFORMATION
  Report Type: Spontaneous
  Country: US (occurrence: None)
  Receive Date: 20160216
  Receipt Date: 20160216
  Transmission Date: 20160526
  Serious: No
  Sender: FDA-Public Use
  Company Number: None

PATIENT
  Age: 78 Year
  Sex: Male
  Weight: 88 kg

DRUGS (2)
  1. CYTARABINE. [Suspect]
     Active Substance: CYTARABINE
     Dates: end: 20130717
  2. DAUNORUBICIN [Concomitant]
     Active Substance: DAUNORUBICIN
     Dates: end: 20130713

REACTIONS (5)
  - Oedema peripheral [None]
  - Hepatic failure [None]
  - Hepatic function abnormal [None]
  - Pyrexia [None]
  - Haematuria [None]

NARRATIVE: CASE EVENT DATE: 20130725
